FAERS Safety Report 23937092 (Version 5)
Quarter: 2024Q3

REPORT INFORMATION
  Report Type: Spontaneous
  Country: CA (occurrence: CA)
  Receive Date: 20240604
  Receipt Date: 20240910
  Transmission Date: 20241017
  Serious: Yes (Other)
  Sender: CELLTRION
  Company Number: CA-PFIZER INC-202400180343

PATIENT

DRUGS (18)
  1. INFLECTRA [Suspect]
     Active Substance: INFLIXIMAB-DYYB
     Indication: Colitis ulcerative
     Dosage: 700 MG, EVERY 6 WEEKS
     Route: 042
     Dates: start: 20240410
  2. INFLECTRA [Suspect]
     Active Substance: INFLIXIMAB-DYYB
     Indication: Pyoderma gangrenosum
     Dosage: 700 MG, EVERY 8 WEEKS
     Route: 042
     Dates: start: 20240605
  3. INFLECTRA [Suspect]
     Active Substance: INFLIXIMAB-DYYB
     Dosage: 700 MG, EVERY 8 WEEKS
     Route: 042
     Dates: start: 20240705
  4. INFLECTRA [Suspect]
     Active Substance: INFLIXIMAB-DYYB
     Dosage: 700 MG, EVERY 8 WEEKS
     Route: 042
     Dates: start: 20240830
  5. ASACOL [Concomitant]
     Active Substance: MESALAMINE
     Dosage: UNK
  6. ASPIRIN [Concomitant]
     Active Substance: ASPIRIN
     Dosage: UNK
  7. BISOPROLOL [Concomitant]
     Active Substance: BISOPROLOL\BISOPROLOL FUMARATE
     Dosage: UNK
  8. DAPAGLIFLOZIN [Concomitant]
     Active Substance: DAPAGLIFLOZIN
     Dosage: UNK
  9. GLICLAZIDE [Concomitant]
     Active Substance: GLICLAZIDE
     Dosage: UNK
  10. IMURAN [Concomitant]
     Active Substance: AZATHIOPRINE
     Dosage: UNK
  11. IRON [Concomitant]
     Active Substance: IRON
     Dosage: UNK
  12. JANUMET [Concomitant]
     Active Substance: METFORMIN HYDROCHLORIDE\SITAGLIPTIN PHOSPHATE
     Dosage: UNK
  13. LASIX [Concomitant]
     Active Substance: FUROSEMIDE
     Dosage: UNK
  14. LIPITOR [Concomitant]
     Active Substance: ATORVASTATIN CALCIUM
     Dosage: UNK
  15. PREDNISONE [Concomitant]
     Active Substance: PREDNISONE
     Dosage: UNK
  16. MESALAMINE [Concomitant]
     Active Substance: MESALAMINE
     Dosage: UNK
  17. SYNTHROID [Concomitant]
     Active Substance: LEVOTHYROXINE SODIUM
     Dosage: UNK
  18. TELMISARTAN [Concomitant]
     Active Substance: TELMISARTAN
     Dosage: UNK

REACTIONS (5)
  - Suicidal ideation [Unknown]
  - Condition aggravated [Recovering/Resolving]
  - Weight decreased [Unknown]
  - Inappropriate schedule of product administration [Unknown]
  - Off label use [Unknown]

NARRATIVE: CASE EVENT DATE: 20240605
